FAERS Safety Report 18493154 (Version 10)
Quarter: 2024Q2

REPORT INFORMATION
  Report Type: Report from Study
  Country: US (occurrence: US)
  Receive Date: 20201112
  Receipt Date: 20240607
  Transmission Date: 20240716
  Serious: Yes (Hospitalization, Other)
  Sender: FDA-Public Use
  Company Number: US-TAKEDA-2020TUS047278

PATIENT
  Sex: Female

DRUGS (2)
  1. HUMAN IMMUNOGLOBULIN G [Suspect]
     Active Substance: HUMAN IMMUNOGLOBULIN G
     Indication: Immunodeficiency common variable
     Dosage: 10 GRAM, 1/WEEK
     Route: 058
  2. HUMAN IMMUNOGLOBULIN G [Suspect]
     Active Substance: HUMAN IMMUNOGLOBULIN G
     Indication: Primary immunodeficiency syndrome

REACTIONS (13)
  - Deafness [Unknown]
  - Granulomatous liver disease [Unknown]
  - Retinal degeneration [Unknown]
  - Pneumonia [Recovering/Resolving]
  - Cataract [Recovered/Resolved]
  - Retching [Not Recovered/Not Resolved]
  - Burns second degree [Unknown]
  - Migraine [Unknown]
  - Illness [Recovering/Resolving]
  - Pulmonary granuloma [Unknown]
  - COVID-19 [Unknown]
  - Nausea [Unknown]
  - Product dose omission issue [Not Recovered/Not Resolved]
